FAERS Safety Report 9959390 (Version 2)
Quarter: 2014Q1

REPORT INFORMATION
  Report Type: Report from Study
  Country: US (occurrence: US)
  Receive Date: 20140305
  Receipt Date: 20140305
  Transmission Date: 20141002
  Serious: Yes (Other)
  Sender: FDA-Public Use
  Company Number: US-ABBVIE-13P-163-1047360-00

PATIENT
  Age: 60 Year
  Sex: Female

DRUGS (23)
  1. HUMIRA [Suspect]
     Indication: ANKYLOSING SPONDYLITIS
     Dates: start: 201208
  2. HUMIRA [Suspect]
     Dates: end: 20130529
  3. TENORMIN [Concomitant]
     Indication: TACHYCARDIA
  4. VERAPAMIL [Concomitant]
     Indication: TACHYCARDIA
     Dosage: 120 MG DAILY
  5. PENTASA [Concomitant]
     Indication: CROHN^S DISEASE
  6. DONNATAL [Concomitant]
     Indication: CROHN^S DISEASE
     Dosage: 2-3 TIMES DAILY
  7. FOSAMAX [Concomitant]
     Indication: OSTEOPENIA
  8. VITAMIN D [Concomitant]
     Indication: PRODUCT USED FOR UNKNOWN INDICATION
  9. PROVIGIL [Concomitant]
     Indication: FATIGUE
     Dosage: 200 MG DAILY
  10. WELLBUTRIN [Concomitant]
     Indication: NEUROPATHY PERIPHERAL
     Dosage: 200 MG DAILY
  11. OXYCONTIN [Concomitant]
     Indication: PAIN
     Dosage: 2-3 TIMES DAILY
  12. OXYCODONE [Concomitant]
     Indication: BREAKTHROUGH PAIN
     Dosage: 6 TABLETS (30 MG) AS NEEDED
  13. OXYBUTYNIN CHLORIDE [Concomitant]
     Indication: URINARY INCONTINENCE
     Dosage: 5 MG DAILY
  14. RESTASIS [Concomitant]
     Indication: DRY EYE
     Dosage: 2-3 DROPS EACH EYE TWICE A DAY
  15. ARTHROMAX COMPOUND [Concomitant]
     Indication: RHEUMATOID ARTHRITIS
  16. SAVELLA [Concomitant]
     Indication: RHEUMATOID ARTHRITIS
  17. ROBAXIN [Concomitant]
     Indication: ANKYLOSING SPONDYLITIS
     Dosage: 2-3 TABLETS 2-3 TIMES A DAY
  18. NEURONTIN [Concomitant]
     Indication: ANKYLOSING SPONDYLITIS
     Dosage: 2-3 TABLETS 2-3 TIMES A DAY
  19. FOLIC ACID [Concomitant]
     Indication: PRODUCT USED FOR UNKNOWN INDICATION
     Dosage: 1 MG DAILY
  20. KLONOPIN [Concomitant]
     Indication: SLEEP DISORDER THERAPY
     Dosage: 2 TABLETS AT HOUR OF SLEEP
  21. METHOTREXATE [Concomitant]
     Indication: PRODUCT USED FOR UNKNOWN INDICATION
     Dosage: 50MG/2ML
     Route: 050
     Dates: start: 2012, end: 201301
  22. PREDNISONE [Concomitant]
     Indication: PRODUCT USED FOR UNKNOWN INDICATION
     Dosage: 5 MG DAILY
     Dates: start: 2012, end: 201301
  23. METHOTREXATE [Concomitant]
     Indication: PRODUCT USED FOR UNKNOWN INDICATION

REACTIONS (7)
  - Infected bites [Not Recovered/Not Resolved]
  - Abscess [Not Recovered/Not Resolved]
  - Adenocarcinoma gastric [Not Recovered/Not Resolved]
  - Drug ineffective [Unknown]
  - Animal bite [Unknown]
  - Diarrhoea [Not Recovered/Not Resolved]
  - Crohn^s disease [Unknown]
